FAERS Safety Report 7357688-5 (Version None)
Quarter: 2011Q1

REPORT INFORMATION
  Report Type: 
  Country: None (occurrence: None)
  Receive Date: 20110314
  Receipt Date: 20110314
  Transmission Date: 20110831
  Serious: Yes (Life-Threatening)
  Sender: FDA-Public Use
  Company Number: None

PATIENT
  Age: 58 Year
  Sex: Female
  Weight: 102.7 kg

DRUGS (1)
  1. NOVA-75 (PREGABALIN 75) 75MG CIPLA LTD. [Suspect]
     Indication: FIBROMYALGIA
     Dosage: 75MG TWICE A DAY ORAL
     Route: 048
     Dates: start: 20090601, end: 20100410

REACTIONS (5)
  - PRODUCT SUBSTITUTION ISSUE [None]
  - DRUG EFFECT DECREASED [None]
  - METAL POISONING [None]
  - BLOOD ARSENIC INCREASED [None]
  - PRODUCT CONTAMINATION PHYSICAL [None]
